FAERS Safety Report 14330702 (Version 2)
Quarter: 2018Q1

REPORT INFORMATION
  Report Type: Report from Study
  Country: None (occurrence: US)
  Receive Date: 20171228
  Receipt Date: 20180118
  Transmission Date: 20180509
  Serious: Yes (Hospitalization, Other)
  Sender: FDA-Public Use
  Company Number: US-ABBVIE-17K-163-2205960-00

PATIENT
  Age: 54 Year
  Sex: Female
  Weight: 122.13 kg

DRUGS (2)
  1. HUMIRA [Suspect]
     Active Substance: ADALIMUMAB
     Route: 058
     Dates: start: 201711
  2. HUMIRA [Suspect]
     Active Substance: ADALIMUMAB
     Indication: CROHN^S DISEASE
     Route: 058
     Dates: start: 201704, end: 20171030

REACTIONS (2)
  - Bladder prolapse [Recovering/Resolving]
  - Biopsy kidney [Recovered/Resolved]

NARRATIVE: CASE EVENT DATE: 20171030
